FAERS Safety Report 8341865-0 (Version None)
Quarter: 2012Q2

REPORT INFORMATION
  Report Type: 
  Country: None (occurrence: None)
  Receive Date: 20120507
  Receipt Date: 20120427
  Transmission Date: 20120825
  Serious: Yes (Other)
  Sender: FDA-Public Use
  Company Number: JP-VERTEX PHARMACEUTICALS INC.-AE-2012-006213

PATIENT
  Age: 65 Year
  Sex: Male

DRUGS (12)
  1. TELAVIC (TELAPREVIR) [Suspect]
     Indication: HEPATITIS C
     Route: 048
     Dates: start: 20120216, end: 20120426
  2. MEIBIS [Concomitant]
     Route: 048
  3. AMLODIPINE [Concomitant]
     Route: 048
  4. LANSOPRAZOLE [Concomitant]
     Route: 048
     Dates: start: 20120220, end: 20120308
  5. PREDNISOLONE [Concomitant]
     Route: 048
     Dates: start: 20120221, end: 20120226
  6. PEG-INTRON [Concomitant]
     Indication: HEPATITIS C
     Route: 051
     Dates: start: 20120216
  7. REBETOL [Concomitant]
     Route: 048
     Dates: start: 20120316, end: 20120404
  8. REBETOL [Concomitant]
     Route: 048
     Dates: start: 20120405
  9. BISOPROLOL FUMARATE [Concomitant]
     Route: 048
  10. GLIMEPIRIDE [Concomitant]
     Route: 048
  11. REBETOL [Concomitant]
     Indication: HEPATITIS C
     Route: 048
     Dates: start: 20120216, end: 20120315
  12. LENDORMIN [Concomitant]
     Route: 048
     Dates: start: 20120218, end: 20120308

REACTIONS (2)
  - SKIN DISORDER [None]
  - DRUG ERUPTION [None]
